FAERS Safety Report 21015849 (Version 1)
Quarter: 2022Q2

REPORT INFORMATION
  Report Type: Spontaneous
  Country: ES (occurrence: ES)
  Receive Date: 20220628
  Receipt Date: 20220628
  Transmission Date: 20220721
  Serious: Yes (Other)
  Sender: FDA-Public Use
  Company Number: ES-Indoco-000318

PATIENT
  Age: 78 Year
  Sex: Male

DRUGS (3)
  1. BRIMONIDINE [Suspect]
     Active Substance: BRIMONIDINE TARTRATE
     Indication: Open angle glaucoma
     Dosage: 2 MG/ML EYE DROPS IN BOTH EYES,
  2. LATANOPROST [Concomitant]
     Active Substance: LATANOPROST
     Indication: Open angle glaucoma
     Dosage: 50 UG/ML IN BOTH EYES
  3. DORZOLAMIDE HYDROCHLORIDE\TIMOLOL MALEATE [Concomitant]
     Active Substance: DORZOLAMIDE HYDROCHLORIDE\TIMOLOL MALEATE
     Indication: Open angle glaucoma
     Dosage: A FIXED COMBINATION OF DORZOLAMIDE 20 MG/ ML AND TIMOLOL 5 MG/ML IN BOTH EYES

REACTIONS (3)
  - Corneal infiltrates [Recovered/Resolved]
  - Hypotony maculopathy [Recovered/Resolved]
  - Conjunctivitis [Recovered/Resolved]
